FAERS Safety Report 8965239 (Version 2)
Quarter: 2013Q3

REPORT INFORMATION
  Report Type: Spontaneous
  Country: US (occurrence: US)
  Receive Date: 20121213
  Receipt Date: 20130918
  Transmission Date: 20140515
  Serious: Yes (Other)
  Sender: FDA-Public Use
  Company Number: US-ROCHE-734603

PATIENT
  Sex: Female

DRUGS (4)
  1. BONIVA [Suspect]
     Indication: OSTEOPOROSIS
     Dosage: OTHER INDICATION: OSTEOPENIA.
     Route: 065
  2. ACTONEL [Suspect]
     Indication: OSTEOPOROSIS
     Dosage: OTHER INDICATION: OSTEOPENIA.
     Route: 065
  3. PERIDEX [Concomitant]
  4. VICODIN [Concomitant]
     Route: 065

REACTIONS (3)
  - Osteonecrosis of jaw [Unknown]
  - Carpal tunnel syndrome [Unknown]
  - Osteoarthritis [Unknown]
